FAERS Safety Report 11348677 (Version 1)
Quarter: 2015Q3

REPORT INFORMATION
  Report Type: Spontaneous
  Country: US (occurrence: US)
  Receive Date: 20150806
  Receipt Date: 20150806
  Transmission Date: 20151125
  Serious: No
  Sender: FDA-Public Use
  Company Number: ALCN2015US004076

PATIENT
  Sex: Female

DRUGS (2)
  1. SYSTANE BALANCE [Suspect]
     Active Substance: PROPYLENE GLYCOL
     Indication: PRODUCT USED FOR UNKNOWN INDICATION
     Dosage: 2 GTT, QHS
     Route: 047
     Dates: start: 2014
  2. SYSTANE BALANCE [Suspect]
     Active Substance: PROPYLENE GLYCOL
     Dosage: 1 GTT, QHS
     Route: 047
     Dates: start: 2014

REACTIONS (1)
  - Vision blurred [Not Recovered/Not Resolved]
